FAERS Safety Report 4369867-X (Version None)
Quarter: 2004Q2

REPORT INFORMATION
  Report Type: 
  Country: None (occurrence: None)
  Receive Date: 20040603
  Receipt Date: 20040529
  Transmission Date: 20050107
  Serious: Yes (Death, Life-Threatening)
  Sender: FDA-Public Use
  Company Number: IT-BRISTOL-MYERS SQUIBB COMPANY-12600078

PATIENT
  Age: 54 Year
  Sex: Female

DRUGS (7)
  1. SUSTIVA [Suspect]
     Indication: ACQUIRED IMMUNODEFICIENCY SYNDROME
     Route: 048
  2. RETROVIR [Suspect]
     Indication: ACQUIRED IMMUNODEFICIENCY SYNDROME
     Route: 048
  3. KALETRA [Suspect]
     Indication: ACQUIRED IMMUNODEFICIENCY SYNDROME
  4. BACTRIM [Concomitant]
  5. LORAZEPAM [Concomitant]
  6. STILNOX [Concomitant]
  7. MELLARIL [Concomitant]

REACTIONS (4)
  - ASTHMA [None]
  - CARDIAC ARREST [None]
  - DEATH [None]
  - RESPIRATORY FAILURE [None]
